FAERS Safety Report 4963850-9 (Version None)
Quarter: 2006Q1

REPORT INFORMATION
  Report Type: 
  Country: None (occurrence: None)
  Receive Date: 20060330
  Receipt Date: 20060320
  Transmission Date: 20060701
  Serious: Yes (Hospitalization)
  Sender: FDA-Public Use
  Company Number: 2006BI004310

PATIENT
  Age: 49 Year
  Sex: Female
  Weight: 131.5431 kg

DRUGS (8)
  1. AVONEX [Suspect]
     Indication: MULTIPLE SCLEROSIS
     Dosage: 30 UG, QW; IM
     Route: 030
     Dates: start: 20020101, end: 20050101
  2. AVONEX [Suspect]
     Indication: MULTIPLE SCLEROSIS
     Dosage: 30 UG, QW; IM
     Route: 030
     Dates: start: 20050101
  3. ACTOS [Concomitant]
  4. ALBUTEROL [Concomitant]
  5. ALLEGRA [Concomitant]
  6. FLOVENT [Concomitant]
  7. KLONOPIN [Concomitant]
  8. LEXAPRO [Concomitant]

REACTIONS (11)
  - BACK INJURY [None]
  - CARDIAC DISORDER [None]
  - CONTUSION [None]
  - CORONARY ARTERY OCCLUSION [None]
  - GASTRIC DISORDER [None]
  - HYPERTENSION [None]
  - JOINT INJURY [None]
  - MIGRAINE [None]
  - MUSCLE SPASMS [None]
  - ROAD TRAFFIC ACCIDENT [None]
  - UPPER LIMB FRACTURE [None]
